FAERS Safety Report 8468194-9 (Version None)
Quarter: 2012Q2

REPORT INFORMATION
  Report Type: 
  Country: None (occurrence: None)
  Receive Date: 20120626
  Receipt Date: 20120611
  Transmission Date: 20120825
  Serious: Yes (Other)
  Sender: FDA-Public Use
  Company Number: DE-ROCHE-1078716

PATIENT

DRUGS (5)
  1. LOPINAVIR [Suspect]
     Indication: HIV INFECTION
  2. DIDANOSINE [Suspect]
     Indication: HIV INFECTION
  3. ZALCITABINE [Suspect]
     Indication: HIV INFECTION
  4. INVIRASE [Suspect]
     Indication: HIV INFECTION
  5. STAVUDINE [Suspect]
     Indication: HIV INFECTION

REACTIONS (1)
  - HEPATIC FIBROSIS [None]
